FAERS Safety Report 9422172 (Version 1)
Quarter: 2013Q3

REPORT INFORMATION
  Report Type: Report from Study
  Country: US (occurrence: US)
  Receive Date: 20130726
  Receipt Date: 20130726
  Transmission Date: 20140515
  Serious: Yes (Other)
  Sender: FDA-Public Use
  Company Number: PHEH2013US015466

PATIENT
  Age: 67 Year
  Sex: Female
  Weight: 66.21 kg

DRUGS (10)
  1. GILENYA [Suspect]
     Indication: MULTIPLE SCLEROSIS
     Dosage: 0.5 MG, UNK
     Route: 048
  2. CRESTOR [Concomitant]
     Dosage: 10 MG, UNK
  3. CALCIUM [Concomitant]
  4. CENTRUM [Concomitant]
  5. KRILL OIL [Concomitant]
     Dosage: 1000 MG, UNK
  6. KETOROLAC [Concomitant]
  7. REFRESH P.M. [Concomitant]
  8. FRESHKOTE [Concomitant]
  9. IMODIUM A-D [Concomitant]
     Dosage: 2 MG, UNK
  10. TYLENOL P.M. [Concomitant]

REACTIONS (2)
  - Retinal oedema [Recovering/Resolving]
  - Visual acuity reduced [Recovering/Resolving]
